FAERS Safety Report 7034879-4 (Version None)
Quarter: 2010Q4

REPORT INFORMATION
  Report Type: 
  Country: None (occurrence: None)
  Receive Date: 20101008
  Receipt Date: 20100902
  Transmission Date: 20110411
  Serious: No
  Sender: FDA-Public Use
  Company Number: US-PFIZER INC-2010111644

PATIENT
  Sex: Female

DRUGS (2)
  1. CHANTIX [Suspect]
     Dosage: 0.5 MG, UNK
  2. NICOTINE [Suspect]
     Dosage: 14 MG, DAILY

REACTIONS (4)
  - CRYING [None]
  - EMOTIONAL DISORDER [None]
  - ENERGY INCREASED [None]
  - FEELING ABNORMAL [None]
